FAERS Safety Report 13880037 (Version 1)
Quarter: 2017Q3

REPORT INFORMATION
  Report Type: Spontaneous
  Country: US (occurrence: US)
  Receive Date: 20170818
  Receipt Date: 20170818
  Transmission Date: 20171127
  Serious: No
  Sender: FDA-Public Use
  Company Number: US-ASTRAZENECA-2017SE79653

PATIENT
  Sex: Male
  Weight: 95.7 kg

DRUGS (1)
  1. PULMICORT FLEXHALER [Suspect]
     Active Substance: BUDESONIDE
     Dosage: DOSE:180 MCG,2 PUFFS, FREQUENCY: TWO TIMES A DAY
     Route: 055

REACTIONS (3)
  - Device malfunction [Unknown]
  - Cough [Unknown]
  - Intentional product use issue [Unknown]
